FAERS Safety Report 19245160 (Version 1)
Quarter: 2021Q2

REPORT INFORMATION
  Report Type: Report from Study
  Country: US (occurrence: US)
  Receive Date: 20210511
  Receipt Date: 20210511
  Transmission Date: 20210717
  Serious: Yes (Other)
  Sender: FDA-Public Use
  Company Number: US-JAZZ-2021-US-008299

PATIENT
  Sex: Female

DRUGS (4)
  1. XYREM [Suspect]
     Active Substance: SODIUM OXYBATE
     Dosage: DOSE ADJUSTMENT
     Route: 048
     Dates: start: 201302, end: 201509
  2. XYREM [Suspect]
     Active Substance: SODIUM OXYBATE
     Dosage: 4.5 GRAM, BID
     Route: 048
     Dates: start: 201509
  3. ZINC. [Suspect]
     Active Substance: ZINC
     Indication: PROPHYLAXIS
  4. XYREM [Suspect]
     Active Substance: SODIUM OXYBATE
     Indication: NARCOLEPSY
     Dosage: 2.25 GRAM, BID
     Route: 048
     Dates: start: 201301, end: 201302

REACTIONS (7)
  - Cataract operation [Unknown]
  - Hot flush [Recovering/Resolving]
  - Migraine [Recovering/Resolving]
  - Bronchiectasis [Unknown]
  - Anorectal disorder [Not Recovered/Not Resolved]
  - Depression [Unknown]
  - Vertigo [Unknown]
